FAERS Safety Report 20946775 (Version 1)
Quarter: 2022Q2

REPORT INFORMATION
  Report Type: Report from Study
  Country: PT (occurrence: None)
  Receive Date: 20220610
  Receipt Date: 20220610
  Transmission Date: 20220721
  Serious: Yes (Other)
  Sender: FDA-Public Use
  Company Number: 2022A209901

PATIENT
  Age: 11 Year
  Sex: Female

DRUGS (1)
  1. SELUMETINIB [Suspect]
     Active Substance: SELUMETINIB
     Route: 048

REACTIONS (8)
  - Haematotoxicity [Unknown]
  - Cardiotoxicity [Unknown]
  - Cardiac valve disease [Unknown]
  - Anaemia [Unknown]
  - Skin toxicity [Unknown]
  - Xeroderma [Unknown]
  - Blood creatine phosphokinase increased [Unknown]
  - Paronychia [Unknown]
